FAERS Safety Report 12460395 (Version 2)
Quarter: 2016Q2

REPORT INFORMATION
  Report Type: Report from Study
  Country: CA (occurrence: CA)
  Receive Date: 20160613
  Receipt Date: 20160617
  Transmission Date: 20160815
  Serious: Yes (Hospitalization, Other)
  Sender: FDA-Public Use
  Company Number: CA-JNJFOC-20160516333

PATIENT
  Sex: Male

DRUGS (1)
  1. IMBRUVICA [Suspect]
     Active Substance: IBRUTINIB
     Indication: MANTLE CELL LYMPHOMA
     Route: 048
     Dates: start: 20160506, end: 20160607

REACTIONS (8)
  - Delirium [Not Recovered/Not Resolved]
  - Atrial fibrillation [Unknown]
  - Mental status changes [Not Recovered/Not Resolved]
  - Dysphonia [Unknown]
  - Neoplasm [Unknown]
  - Platelet transfusion [Unknown]
  - Asthenia [Not Recovered/Not Resolved]
  - Transfusion [Unknown]
